FAERS Safety Report 8007513-4 (Version None)
Quarter: 2011Q4

REPORT INFORMATION
  Report Type: 
  Country: None (occurrence: None)
  Receive Date: 20111222
  Receipt Date: 20111222
  Transmission Date: 20120403
  Serious: Yes (Hospitalization)
  Sender: FDA-Public Use
  Company Number: None

PATIENT
  Sex: Male
  Weight: 97.8 kg

DRUGS (2)
  1. VORINISTAT [Suspect]
     Indication: LUNG NEOPLASM MALIGNANT
     Dosage: 200MG/3X'S PER WK/ORAL
     Route: 048
     Dates: start: 20111212, end: 20111219
  2. CISPLATIN [Suspect]
     Indication: LUNG NEOPLASM MALIGNANT
     Dosage: 160MG/ONCE Q 3 WKS/IV
     Route: 042
     Dates: start: 20111212

REACTIONS (2)
  - URINARY RETENTION [None]
  - BLOOD SODIUM DECREASED [None]
